FAERS Safety Report 4611764-6 (Version None)
Quarter: 2005Q1

REPORT INFORMATION
  Report Type: 
  Country: None (occurrence: None)
  Receive Date: 20050308
  Receipt Date: 20041206
  Transmission Date: 20050727
  Serious: Yes (Other)
  Sender: FDA-Public Use
  Company Number: 2004UW24943

PATIENT
  Age: 66 Year
  Sex: Male
  Weight: 79.378 kg

DRUGS (3)
  1. CRESTOR [Suspect]
     Indication: BLOOD CHOLESTEROL INCREASED
     Dosage: 10 MG PO
     Route: 048
  2. TOPROL-XL [Concomitant]
  3. PRINIVIL [Concomitant]

REACTIONS (2)
  - GOUT [None]
  - MUSCLE FATIGUE [None]
